FAERS Safety Report 25118359 (Version 1)
Quarter: 2025Q1

REPORT INFORMATION
  Report Type: Spontaneous
  Country: IN (occurrence: IN)
  Receive Date: 20250325
  Receipt Date: 20250325
  Transmission Date: 20250409
  Serious: Yes (Life-Threatening, Other)
  Sender: EPIC PHARM
  Company Number: IN-EPICPHARMA-IN-2025EPCLIT00288

PATIENT
  Age: 70 Year
  Sex: Female

DRUGS (8)
  1. EPIRUBICIN HYDROCHLORIDE [Suspect]
     Active Substance: EPIRUBICIN HYDROCHLORIDE
     Indication: Invasive ductal breast carcinoma
     Route: 065
  2. EPIRUBICIN HYDROCHLORIDE [Suspect]
     Active Substance: EPIRUBICIN HYDROCHLORIDE
     Route: 065
  3. CYCLOPHOSPHAMIDE [Suspect]
     Active Substance: CYCLOPHOSPHAMIDE
     Indication: Invasive ductal breast carcinoma
     Route: 065
  4. CYCLOPHOSPHAMIDE [Suspect]
     Active Substance: CYCLOPHOSPHAMIDE
     Route: 065
  5. DOCETAXEL [Suspect]
     Active Substance: DOCETAXEL
     Indication: Invasive ductal breast carcinoma
     Route: 065
  6. DOCETAXEL [Suspect]
     Active Substance: DOCETAXEL
     Route: 065
  7. TAMOXIFEN [Concomitant]
     Active Substance: TAMOXIFEN
     Route: 065
  8. TEMOZOLOMIDE [Concomitant]
     Active Substance: TEMOZOLOMIDE
     Indication: Product used for unknown indication
     Route: 065

REACTIONS (1)
  - Glioblastoma multiforme [Unknown]
